FAERS Safety Report 4284998-0 (Version None)
Quarter: 2004Q1

REPORT INFORMATION
  Report Type: 
  Country: None (occurrence: None)
  Receive Date: 20040203
  Receipt Date: 20040203
  Transmission Date: 20041129
  Serious: Yes (Hospitalization)
  Sender: FDA-Public Use
  Company Number: None

PATIENT
  Sex: Male
  Weight: 94.8018 kg

DRUGS (3)
  1. TAXOTERE [Suspect]
     Indication: NON-SMALL CELL LUNG CANCER
     Dosage: 84.8 X2 WEEKLY INTRAVENOUS
     Route: 042
     Dates: start: 20031204, end: 20040122
  2. GEMCITABINE 1000MG/M2 LILLY [Suspect]
     Indication: NON-SMALL CELL LUNG CANCER
     Dosage: 2120.0 WEEKLY X 2 INTRAVENOUS
     Route: 042
     Dates: start: 20031204, end: 20040122
  3. ZESTRIL [Concomitant]

REACTIONS (7)
  - CHILLS [None]
  - COUGH [None]
  - MOUTH ULCERATION [None]
  - NEUTROPHIL COUNT DECREASED [None]
  - PHARYNGOLARYNGEAL PAIN [None]
  - PYREXIA [None]
  - UPPER RESPIRATORY TRACT INFECTION [None]
